FAERS Safety Report 10643886 (Version 3)
Quarter: 2017Q1

REPORT INFORMATION
  Report Type: Spontaneous
  Country: FR (occurrence: FR)
  Receive Date: 20141210
  Receipt Date: 20170207
  Transmission Date: 20170428
  Serious: Yes (Hospitalization, Other)
  Sender: FDA-Public Use
  Company Number: FR-UCBSA-2014020446

PATIENT
  Age: 30 Year
  Sex: Male
  Weight: 58 kg

DRUGS (3)
  1. APRANAX [Concomitant]
     Active Substance: NAPROXEN
     Indication: PRODUCT USED FOR UNKNOWN INDICATION
     Dosage: UNK
  2. CIMZIA [Suspect]
     Active Substance: CERTOLIZUMAB PEGOL
     Indication: SPONDYLOARTHROPATHY
  3. CIMZIA [Suspect]
     Active Substance: CERTOLIZUMAB PEGOL
     Indication: ANKYLOSING SPONDYLITIS
     Dosage: 200 MG, EV 2 WEEKS(QOW)
     Route: 058
     Dates: start: 201404, end: 20141020

REACTIONS (7)
  - Muscle contractions involuntary [Not Recovered/Not Resolved]
  - Lung infection [Unknown]
  - Eye pain [Recovered/Resolved]
  - Hemiparesis [Not Recovered/Not Resolved]
  - Asthenia [Unknown]
  - Testicular pain [Recovered/Resolved]
  - Mycoplasma infection [Unknown]

NARRATIVE: CASE EVENT DATE: 2014
